FAERS Safety Report 13958977 (Version 1)
Quarter: 2017Q3

REPORT INFORMATION
  Report Type: Report from Study
  Country: CO (occurrence: CO)
  Receive Date: 20170911
  Receipt Date: 20170911
  Transmission Date: 20171128
  Serious: Yes (Other)
  Sender: FDA-Public Use
  Company Number: PHHY2017CO050336

PATIENT
  Age: 25 Year
  Sex: Male
  Weight: 85 kg

DRUGS (4)
  1. SILDENAFIL. [Concomitant]
     Active Substance: SILDENAFIL
     Indication: PRODUCT USED FOR UNKNOWN INDICATION
     Dosage: OCCASIONALLY
     Route: 065
  2. LEVITRA [Concomitant]
     Active Substance: VARDENAFIL HYDROCHLORIDE TRIHYDRATE
     Indication: PRODUCT USED FOR UNKNOWN INDICATION
     Route: 065
  3. TASIGNA [Suspect]
     Active Substance: NILOTINIB
     Indication: CHRONIC MYELOID LEUKAEMIA
     Dosage: 2 DF, Q12H
     Route: 048
     Dates: start: 20160828
  4. TASIGNA [Suspect]
     Active Substance: NILOTINIB
     Dosage: 150 MG, BID
     Route: 048
     Dates: start: 20170721, end: 20170818

REACTIONS (26)
  - Pruritus [Unknown]
  - Asthenia [Unknown]
  - Eye pain [Unknown]
  - Eyelid function disorder [Unknown]
  - Eye pruritus [Unknown]
  - Ocular hyperaemia [Recovered/Resolved]
  - Pain [Unknown]
  - Vomiting [Unknown]
  - Rash generalised [Unknown]
  - Eye pain [Recovered/Resolved]
  - Hernia [Unknown]
  - Vision blurred [Unknown]
  - Inflammation [Unknown]
  - Swelling [Unknown]
  - Blindness [Unknown]
  - Headache [Unknown]
  - Eye irritation [Unknown]
  - Bone pain [Unknown]
  - Gastritis [Unknown]
  - Mass [Unknown]
  - Acne [Unknown]
  - Conjunctivitis allergic [Unknown]
  - Hypersensitivity [Unknown]
  - Oesophagitis [Unknown]
  - Visual impairment [Unknown]
  - Fatigue [Unknown]

NARRATIVE: CASE EVENT DATE: 20160829
